FAERS Safety Report 16196740 (Version 1)
Quarter: 2019Q2

REPORT INFORMATION
  Report Type: Spontaneous
  Country: US (occurrence: US)
  Receive Date: 20190415
  Receipt Date: 20190415
  Transmission Date: 20190711
  Serious: Yes (Death, Hospitalization)
  Sender: FDA-Public Use
  Company Number: US-UNICHEM PHARMACEUTICALS (USA) INC-UCM201904-000135

PATIENT
  Age: 71 Year
  Sex: Female

DRUGS (7)
  1. DIVALPROEX SODIUM. [Suspect]
     Active Substance: DIVALPROEX SODIUM
  2. PANTOPRAZOLE [Concomitant]
     Active Substance: PANTOPRAZOLE
  3. SYNTHROID [Concomitant]
     Active Substance: LEVOTHYROXINE SODIUM
  4. QUETIAPINE. [Suspect]
     Active Substance: QUETIAPINE
  5. DIVALPROEX SODIUM. [Suspect]
     Active Substance: DIVALPROEX SODIUM
     Dates: start: 201901
  6. QUETIAPINE. [Suspect]
     Active Substance: QUETIAPINE
  7. PLAVIX [Concomitant]
     Active Substance: CLOPIDOGREL BISULFATE

REACTIONS (3)
  - Personality change [Not Recovered/Not Resolved]
  - Hospitalisation [Recovered/Resolved]
  - Dementia [Fatal]

NARRATIVE: CASE EVENT DATE: 20190211
